APPROVED DRUG PRODUCT: METHOCARBAMOL
Active Ingredient: METHOCARBAMOL
Strength: 1GM/10ML (100MG/ML)
Dosage Form/Route: SOLUTION;IM-IV
Application: A207522 | Product #001 | TE Code: AP
Applicant: SOMERSET THERAPEUTICS LLC
Approved: Jul 31, 2017 | RLD: No | RS: No | Type: RX